FAERS Safety Report 19731015 (Version 1)
Quarter: 2021Q3

REPORT INFORMATION
  Report Type: Spontaneous
  Country: BR (occurrence: BR)
  Receive Date: 20210820
  Receipt Date: 20210820
  Transmission Date: 20211014
  Serious: Yes (Other)
  Sender: FDA-Public Use
  Company Number: BR-TAKEDA-2021TUS051752

PATIENT
  Age: 83 Year
  Sex: Female

DRUGS (1)
  1. MESACOL [MESALAZINE] [Suspect]
     Active Substance: MESALAMINE
     Indication: DIVERTICULUM INTESTINAL
     Dosage: UNK UNK, MONTHLY
     Route: 065

REACTIONS (5)
  - Product residue present [Unknown]
  - Therapeutic product effect incomplete [Unknown]
  - Intestinal perforation [Unknown]
  - Abdominal abscess [Unknown]
  - Product use in unapproved indication [Unknown]
